FAERS Safety Report 15433907 (Version 1)
Quarter: 2018Q3

REPORT INFORMATION
  Report Type: Spontaneous
  Country: US (occurrence: US)
  Receive Date: 20180921
  Receipt Date: 20180921
  Transmission Date: 20181010
  Serious: Yes (Hospitalization)
  Sender: FDA-Public Use
  Company Number: None

PATIENT
  Age: 50 Year
  Sex: Male

DRUGS (1)
  1. GLATIRAMER 40 MG PFS INJ (12/BOX) [Suspect]
     Active Substance: GLATIRAMER
     Dates: start: 20180214, end: 20180718

REACTIONS (1)
  - Multiple sclerosis relapse [None]

NARRATIVE: CASE EVENT DATE: 20180910
